FAERS Safety Report 17394401 (Version 1)
Quarter: 2020Q1

REPORT INFORMATION
  Report Type: Spontaneous
  Country: DE (occurrence: DE)
  Receive Date: 20200210
  Receipt Date: 20200210
  Transmission Date: 20200409
  Serious: Yes (Hospitalization)
  Sender: FDA-Public Use
  Company Number: DE-TEVA-2020-DE-1181182

PATIENT
  Age: 59 Year
  Sex: Male

DRUGS (4)
  1. FENISTIL TROPFEN [Concomitant]
  2. ACICLOVIR-RATIOPHARM [ACICLOVIR] [Suspect]
     Active Substance: ACYCLOVIR
     Indication: HERPES ZOSTER
     Dosage: 4000 MILLIGRAM DAILY; USED A FEW TABLETS
     Route: 048
  3. CETIRIZIN [Concomitant]
     Active Substance: CETIRIZINE HYDROCHLORIDE
  4. ACICLOVIR-RATIOPHARM [ACICLOVIR] [Suspect]
     Active Substance: ACYCLOVIR
     Dosage: 4000 MILLIGRAM DAILY; USED 22 TABLETS UNTIL NOW
     Route: 048
     Dates: start: 20200130

REACTIONS (6)
  - Circulatory collapse [Recovering/Resolving]
  - Aphasia [Recovering/Resolving]
  - Eye pruritus [Not Recovered/Not Resolved]
  - Therapeutic product effect delayed [Unknown]
  - Feeling abnormal [Unknown]
  - Monoparesis [Recovering/Resolving]
